FAERS Safety Report 5321220-8 (Version None)
Quarter: 2007Q2

REPORT INFORMATION
  Report Type: 
  Country: None (occurrence: None)
  Receive Date: 20070214
  Receipt Date: 20061106
  Transmission Date: 20071010
  Serious: Yes (Other)
  Sender: FDA-Public Use
  Company Number: 149491USA

PATIENT

DRUGS (1)
  1. PROPOFOL [Suspect]

REACTIONS (2)
  - COUGH [None]
  - LARYNGOSPASM [None]
